FAERS Safety Report 12334078 (Version 1)
Quarter: 2016Q2

REPORT INFORMATION
  Report Type: Spontaneous
  Country: US (occurrence: US)
  Receive Date: 20160504
  Receipt Date: 20160504
  Transmission Date: 20160815
  Serious: No
  Sender: FDA-Public Use
  Company Number: US-ROCHE-1711670

PATIENT
  Sex: Female

DRUGS (16)
  1. TOPROL XL [Concomitant]
     Active Substance: METOPROLOL SUCCINATE
  2. FLUTICASONE [Concomitant]
     Active Substance: FLUTICASONE\FLUTICASONE PROPIONATE
  3. ESBRIET [Suspect]
     Active Substance: PIRFENIDONE
     Indication: IDIOPATHIC PULMONARY FIBROSIS
     Route: 048
     Dates: start: 20150425
  4. LEVOTHYROXINE. [Concomitant]
     Active Substance: LEVOTHYROXINE
  5. SINGULAIR [Concomitant]
     Active Substance: MONTELUKAST SODIUM
  6. SYMBICORT [Concomitant]
     Active Substance: BUDESONIDE\FORMOTEROL FUMARATE DIHYDRATE
  7. OMEPRAZOLE. [Concomitant]
     Active Substance: OMEPRAZOLE
  8. CETIRIZINE [Concomitant]
     Active Substance: CETIRIZINE HYDROCHLORIDE
  9. HUMALOG [Concomitant]
     Active Substance: INSULIN LISPRO
  10. PROAIR HFA [Concomitant]
     Active Substance: ALBUTEROL SULFATE
  11. LANTUS [Concomitant]
     Active Substance: INSULIN GLARGINE
  12. HCTZ [Concomitant]
     Active Substance: HYDROCHLOROTHIAZIDE
  13. LIPITOR [Concomitant]
     Active Substance: ATORVASTATIN CALCIUM
  14. ASPIRIN. [Concomitant]
     Active Substance: ASPIRIN
  15. LYRICA [Concomitant]
     Active Substance: PREGABALIN
  16. LOSARTAN. [Concomitant]
     Active Substance: LOSARTAN

REACTIONS (1)
  - Nasopharyngitis [Unknown]
